FAERS Safety Report 13735076 (Version 1)
Quarter: 2017Q3

REPORT INFORMATION
  Report Type: Spontaneous
  Country: US (occurrence: US)
  Receive Date: 20170710
  Receipt Date: 20170710
  Transmission Date: 20171127
  Serious: No
  Sender: FDA-Public Use
  Company Number: US-THE MEDICINES COMPANY-US-MDCO-17-00051

PATIENT
  Age: 49 Year
  Sex: Male

DRUGS (3)
  1. IONSYS [Suspect]
     Active Substance: FENTANYL HYDROCHLORIDE
     Indication: PRODUCT USED FOR UNKNOWN INDICATION
     Dosage: NOT REPORTED
     Dates: start: 20170201
  2. IONSYS [Suspect]
     Active Substance: FENTANYL HYDROCHLORIDE
     Dosage: NOT REPORTED
     Dates: start: 20170203
  3. IONSYS [Suspect]
     Active Substance: FENTANYL HYDROCHLORIDE
     Dates: start: 20170202, end: 20170203

REACTIONS (1)
  - Application site erythema [Unknown]

NARRATIVE: CASE EVENT DATE: 20170203
